FAERS Safety Report 15180205 (Version 1)
Quarter: 2018Q3

REPORT INFORMATION
  Report Type: Report from Study
  Country: JP (occurrence: JP)
  Receive Date: 20180723
  Receipt Date: 20180723
  Transmission Date: 20181010
  Serious: Yes (Hospitalization)
  Sender: FDA-Public Use
  Company Number: JP-SA-2018SA120408

PATIENT
  Age: 59 Year
  Sex: Male
  Weight: 78 kg

DRUGS (56)
  1. BLINDED INSULIN GLARGINE [Suspect]
     Active Substance: INSULIN GLARGINE
     Dosage: 6 MG, QD
     Route: 048
     Dates: start: 20180125, end: 20180131
  2. BLINDED INSULIN GLARGINE [Suspect]
     Active Substance: INSULIN GLARGINE
     Dosage: 7 MG, QD
     Route: 048
     Dates: start: 20180201, end: 20180207
  3. BLINDED INSULIN GLARGINE [Suspect]
     Active Substance: INSULIN GLARGINE
     Dosage: 13 MG, QD
     Route: 048
     Dates: start: 20180301, end: 20180314
  4. BLINDED INSULIN GLARGINE/LIXISENATIDE [Suspect]
     Active Substance: INSULIN GLARGINE\LIXISENATIDE
     Dosage: 18 MG, QD
     Route: 048
     Dates: start: 20180517, end: 20180620
  5. LOXONIN [Concomitant]
     Active Substance: LOXOPROFEN SODIUM
     Indication: LUMBAR HERNIA
     Dosage: 60 MG, PRN
     Route: 048
  6. BLINDED NO STUDY DRUG GIVEN [Suspect]
     Active Substance: INVESTIGATIONAL PRODUCT
     Dosage: 6 MG, QD
     Route: 048
     Dates: start: 20180125, end: 20180131
  7. BLINDED NO STUDY DRUG GIVEN [Suspect]
     Active Substance: INVESTIGATIONAL PRODUCT
     Dosage: 8 MG, QD
     Route: 048
     Dates: start: 20180208, end: 20180214
  8. BLINDED INSULIN GLARGINE [Suspect]
     Active Substance: INSULIN GLARGINE
     Dosage: 10 MG, QD
     Route: 048
     Dates: start: 20180215, end: 20180221
  9. BLINDED NO STUDY DRUG GIVEN [Suspect]
     Active Substance: INVESTIGATIONAL PRODUCT
     Dosage: 12 MG, QD
     Route: 048
     Dates: start: 20180222, end: 20180228
  10. BLINDED INSULIN GLARGINE [Suspect]
     Active Substance: INSULIN GLARGINE
     Dosage: 13 MG, QD
     Route: 048
     Dates: start: 20180301, end: 20180314
  11. BLINDED INSULIN GLARGINE/LIXISENATIDE [Suspect]
     Active Substance: INSULIN GLARGINE\LIXISENATIDE
     Indication: PRODUCT USED FOR UNKNOWN INDICATION
     Dosage: 16 MG, QD
     Route: 048
     Dates: start: 20180412, end: 20180425
  12. BLINDED INSULIN GLARGINE [Suspect]
     Active Substance: INSULIN GLARGINE
     Dosage: 6 MG, QD
     Route: 048
     Dates: start: 20180125, end: 20180131
  13. BLINDED INSULIN GLARGINE [Suspect]
     Active Substance: INSULIN GLARGINE
     Dosage: 7 MG, QD
     Route: 048
     Dates: start: 20180201, end: 20180207
  14. BLINDED NO STUDY DRUG GIVEN [Suspect]
     Active Substance: INVESTIGATIONAL PRODUCT
     Dosage: 10 MG, QD
     Route: 048
     Dates: start: 20180215, end: 20180221
  15. BLINDED NO STUDY DRUG GIVEN [Suspect]
     Active Substance: INVESTIGATIONAL PRODUCT
     Dosage: 13 MG, QD
     Route: 048
     Dates: start: 20180301, end: 20180314
  16. BLINDED INSULIN GLARGINE [Suspect]
     Active Substance: INSULIN GLARGINE
     Dosage: 15 MG, QD
     Route: 048
     Dates: start: 20180329, end: 20180411
  17. CANDESARTAN [CANDESARTAN CILEXETIL] [Concomitant]
     Indication: HYPERTENSION
     Dosage: 4 MG, QD (AFTER BREAKFAST)
     Route: 048
     Dates: start: 20171019
  18. BLINDED INSULIN GLARGINE [Suspect]
     Active Substance: INSULIN GLARGINE
     Indication: PRODUCT USED FOR UNKNOWN INDICATION
     Dosage: 16 MG, QD
     Route: 048
     Dates: start: 20180412, end: 20180425
  19. BLINDED INSULIN GLARGINE/LIXISENATIDE [Suspect]
     Active Substance: INSULIN GLARGINE\LIXISENATIDE
     Dosage: 10 MG, QD
     Route: 048
     Dates: start: 20180215, end: 20180221
  20. BLINDED INSULIN GLARGINE/LIXISENATIDE [Suspect]
     Active Substance: INSULIN GLARGINE\LIXISENATIDE
     Dosage: 12 MG, QD
     Route: 048
     Dates: start: 20180222, end: 20180228
  21. BLINDED INSULIN GLARGINE [Suspect]
     Active Substance: INSULIN GLARGINE
     Dosage: 15 MG, QD
     Route: 048
     Dates: start: 20180329, end: 20180411
  22. BLINDED INSULIN GLARGINE [Suspect]
     Active Substance: INSULIN GLARGINE
     Dosage: 17 MG, QD
     Route: 048
     Dates: start: 20180426, end: 20180516
  23. BLINDED NO STUDY DRUG GIVEN [Suspect]
     Active Substance: INVESTIGATIONAL PRODUCT
     Dosage: 17 MG, QD
     Route: 048
     Dates: start: 20180426, end: 20180516
  24. BLINDED INSULIN GLARGINE [Suspect]
     Active Substance: INSULIN GLARGINE
     Dosage: 18 MG, QD
     Route: 048
     Dates: start: 20180517, end: 20180620
  25. BLINDED INSULIN GLARGINE [Suspect]
     Active Substance: INSULIN GLARGINE
     Dosage: 19 MG, QD
     Route: 048
     Dates: start: 20180621
  26. BLINDED INSULIN GLARGINE/LIXISENATIDE [Suspect]
     Active Substance: INSULIN GLARGINE\LIXISENATIDE
     Dosage: 19 MG, QD
     Route: 048
     Dates: start: 20180621
  27. ATORVASTATIN [ATORVASTATIN CALCIUM] [Concomitant]
     Indication: DYSLIPIDAEMIA
     Dosage: 10 MG, QD (AFTER BREAKFAST)
     Route: 048
     Dates: start: 20180412
  28. BLINDED INSULIN GLARGINE [Suspect]
     Active Substance: INSULIN GLARGINE
     Dosage: 8 MG, QD
     Route: 048
     Dates: start: 20180208, end: 20180214
  29. BLINDED INSULIN GLARGINE [Suspect]
     Active Substance: INSULIN GLARGINE
     Dosage: 10 MG, QD
     Route: 048
     Dates: start: 20180215, end: 20180221
  30. BLINDED INSULIN GLARGINE [Suspect]
     Active Substance: INSULIN GLARGINE
     Dosage: 12 MG, QD
     Route: 048
     Dates: start: 20180222, end: 20180228
  31. BLINDED INSULIN GLARGINE/LIXISENATIDE [Suspect]
     Active Substance: INSULIN GLARGINE\LIXISENATIDE
     Dosage: 13 MG, QD
     Route: 048
     Dates: start: 20180301, end: 20180314
  32. BLINDED INSULIN GLARGINE/LIXISENATIDE [Suspect]
     Active Substance: INSULIN GLARGINE\LIXISENATIDE
     Dosage: 14 MG, QD
     Route: 048
     Dates: start: 20180315, end: 20180328
  33. BLINDED INSULIN GLARGINE [Suspect]
     Active Substance: INSULIN GLARGINE
     Dosage: 19 MG, QD
     Route: 048
     Dates: start: 20180621
  34. METGLUCO [Concomitant]
     Active Substance: METFORMIN HYDROCHLORIDE
     Indication: TYPE 2 DIABETES MELLITUS
     Dosage: 500 MG, BID (AFTER BREAKFAST AND DINNER)
     Route: 048
     Dates: start: 20120822, end: 20180422
  35. LOXONIN [Concomitant]
     Active Substance: LOXOPROFEN SODIUM
     Indication: MUSCULOSKELETAL STIFFNESS
  36. BLINDED INSULIN GLARGINE [Suspect]
     Active Substance: INSULIN GLARGINE
     Indication: PRODUCT USED FOR UNKNOWN INDICATION
     Dosage: 16 MG, QD
     Route: 048
     Dates: start: 20180412, end: 20180425
  37. BLINDED INSULIN GLARGINE [Suspect]
     Active Substance: INSULIN GLARGINE
     Dosage: 8 MG, QD
     Route: 048
     Dates: start: 20180208, end: 20180214
  38. BLINDED INSULIN GLARGINE [Suspect]
     Active Substance: INSULIN GLARGINE
     Dosage: 12 MG, QD
     Route: 048
     Dates: start: 20180222, end: 20180228
  39. BLINDED INSULIN GLARGINE [Suspect]
     Active Substance: INSULIN GLARGINE
     Dosage: 14 MG, QD
     Route: 048
     Dates: start: 20180315, end: 20180328
  40. BLINDED NO STUDY DRUG GIVEN [Suspect]
     Active Substance: INVESTIGATIONAL PRODUCT
     Dosage: 14 MG, QD
     Route: 048
     Dates: start: 20180315, end: 20180328
  41. BLINDED INSULIN GLARGINE/LIXISENATIDE [Suspect]
     Active Substance: INSULIN GLARGINE\LIXISENATIDE
     Dosage: 17 MG, QD
     Route: 048
     Dates: start: 20180426, end: 20180516
  42. BLINDED NO STUDY DRUG GIVEN [Suspect]
     Active Substance: INVESTIGATIONAL PRODUCT
     Dosage: 19 MG, QD
     Route: 048
     Dates: start: 20180621
  43. METGLUCO [Concomitant]
     Active Substance: METFORMIN HYDROCHLORIDE
     Dosage: UNK
     Route: 048
     Dates: start: 20180427, end: 20180630
  44. URITOS [Concomitant]
     Active Substance: IMIDAFENACIN
     Indication: HYPERTONIC BLADDER
     Dosage: 0.1 MG, BID (AFTER BREAKFAST AND DINNER)
     Route: 048
     Dates: start: 20160511
  45. BLINDED INSULIN GLARGINE/LIXISENATIDE [Suspect]
     Active Substance: INSULIN GLARGINE\LIXISENATIDE
     Dosage: 6 MG, QD
     Route: 048
     Dates: start: 20180125, end: 20180131
  46. BLINDED INSULIN GLARGINE/LIXISENATIDE [Suspect]
     Active Substance: INSULIN GLARGINE\LIXISENATIDE
     Dosage: 7 MG, QD
     Route: 048
     Dates: start: 20180201, end: 20180207
  47. BLINDED INSULIN GLARGINE/LIXISENATIDE [Suspect]
     Active Substance: INSULIN GLARGINE\LIXISENATIDE
     Dosage: 8 MG, QD
     Route: 048
     Dates: start: 20180208, end: 20180214
  48. BLINDED INSULIN GLARGINE [Suspect]
     Active Substance: INSULIN GLARGINE
     Dosage: 14 MG, QD
     Route: 048
     Dates: start: 20180315, end: 20180328
  49. BLINDED INSULIN GLARGINE/LIXISENATIDE [Suspect]
     Active Substance: INSULIN GLARGINE\LIXISENATIDE
     Dosage: 15 MG, QD
     Route: 048
     Dates: start: 20180329, end: 20180411
  50. BLINDED NO STUDY DRUG GIVEN [Suspect]
     Active Substance: INVESTIGATIONAL PRODUCT
     Dosage: 15 MG, QD
     Route: 048
     Dates: start: 20180329, end: 20180411
  51. BLINDED INSULIN GLARGINE [Suspect]
     Active Substance: INSULIN GLARGINE
     Dosage: 18 MG, QD
     Route: 048
     Dates: start: 20180517, end: 20180620
  52. BLINDED NO STUDY DRUG GIVEN [Suspect]
     Active Substance: INVESTIGATIONAL PRODUCT
     Dosage: 18 MG, QD
     Route: 048
     Dates: start: 20180517, end: 20180620
  53. BLINDED NO STUDY DRUG GIVEN [Suspect]
     Active Substance: INVESTIGATIONAL PRODUCT
     Indication: PRODUCT USED FOR UNKNOWN INDICATION
     Dosage: 16 MG, QD
     Route: 048
     Dates: start: 20180412, end: 20180425
  54. BLINDED NO STUDY DRUG GIVEN [Suspect]
     Active Substance: INVESTIGATIONAL PRODUCT
     Dosage: 7 MG, QD
     Route: 048
     Dates: start: 20180201, end: 20180207
  55. BLINDED INSULIN GLARGINE [Suspect]
     Active Substance: INSULIN GLARGINE
     Dosage: 17 MG, QD
     Route: 048
     Dates: start: 20180426, end: 20180516
  56. NAFTOPIDIL [Concomitant]
     Active Substance: NAFTOPIDIL
     Indication: BENIGN PROSTATIC HYPERPLASIA
     Dosage: 50 MG, QD (AFTER DINNER)
     Route: 048
     Dates: start: 20160831

REACTIONS (2)
  - Aneurysm [Recovered/Resolved]
  - Angina pectoris [Recovered/Resolved]

NARRATIVE: CASE EVENT DATE: 20180424
